FAERS Safety Report 7032802-X (Version None)
Quarter: 2010Q4

REPORT INFORMATION
  Report Type: 
  Country: None (occurrence: None)
  Receive Date: 20101005
  Receipt Date: 20100920
  Transmission Date: 20110411
  Serious: Yes (Other)
  Sender: FDA-Public Use
  Company Number: GB-ACCORD-004712

PATIENT
  Age: 60 Year
  Sex: Female

DRUGS (8)
  1. IRINOTECAN HCL [Suspect]
     Indication: RECTAL CANCER METASTATIC
  2. FLUOROURACIL [Suspect]
     Indication: RECTAL CANCER METASTATIC
  3. BEVACIZUMAB (BEVACIZUMAB) [Suspect]
     Indication: RECTAL CANCER METASTATIC
  4. LEUCOVORIN (LEUCOVORIN) [Concomitant]
  5. DEXAMETHASONE [Concomitant]
  6. ONDANSETRON [Concomitant]
  7. METOCLOPRAMIDE [Concomitant]
  8. ATROPINE [Concomitant]

REACTIONS (3)
  - BARRETT'S OESOPHAGUS [None]
  - OESOPHAGEAL ULCER [None]
  - OESOPHAGITIS [None]
